FAERS Safety Report 7214568-3 (Version None)
Quarter: 2011Q1

REPORT INFORMATION
  Report Type: 
  Country: None (occurrence: None)
  Receive Date: 20110107
  Receipt Date: 20101229
  Transmission Date: 20110831
  Serious: Yes (Other)
  Sender: FDA-Public Use
  Company Number: CA-BAYER-2010-008618

PATIENT
  Age: 43 Year
  Sex: Female
  Weight: 65.306 kg

DRUGS (7)
  1. DEXEDRINE [Concomitant]
  2. IMITREX [Concomitant]
  3. WELLBUTRIN [Concomitant]
  4. CYTOMEL [Concomitant]
  5. MIRENA [Suspect]
     Indication: PRODUCT USED FOR UNKNOWN INDICATION
     Dosage: 20 MCG/24HR, CONTINUOUS
     Route: 015
  6. CIPRALEX [Concomitant]
  7. DEXEDRINE [Concomitant]

REACTIONS (8)
  - CONDITION AGGRAVATED [None]
  - INCOHERENT [None]
  - DEPRESSION [None]
  - PARAESTHESIA [None]
  - ABDOMINAL PAIN [None]
  - AFFECT LABILITY [None]
  - DIZZINESS [None]
  - THINKING ABNORMAL [None]
